FAERS Safety Report 17246656 (Version 23)
Quarter: 2021Q4

REPORT INFORMATION
  Report Type: Spontaneous
  Country: US (occurrence: US)
  Receive Date: 20200108
  Receipt Date: 20211210
  Transmission Date: 20220303
  Serious: Yes (Hospitalization, Other)
  Sender: FDA-Public Use
  Company Number: US-PFIZER INC-2019169617

PATIENT
  Age: 46 Year
  Sex: Female
  Weight: 108.86 kg

DRUGS (3)
  1. LYRICA [Suspect]
     Active Substance: PREGABALIN
     Indication: Neuropathy peripheral
     Dosage: 100 MG, THRICE DAILY (1 CAPSULE EVERY 8 HOURS)
     Route: 048
     Dates: end: 202010
  2. LYRICA [Suspect]
     Active Substance: PREGABALIN
     Indication: Diabetic neuropathy
     Dosage: 100 MG, THRICE DAILY (1 CAPSULE EVERY 8 HOURS)
     Route: 048
  3. LYRICA [Suspect]
     Active Substance: PREGABALIN
     Indication: Pain

REACTIONS (13)
  - Cerebrovascular accident [Recovered/Resolved]
  - COVID-19 pneumonia [Recovered/Resolved]
  - Osteomyelitis [Unknown]
  - Pneumonia [Unknown]
  - Diabetic coma [Unknown]
  - Laryngitis [Unknown]
  - Arthritis [Unknown]
  - Anxiety [Unknown]
  - Panic attack [Unknown]
  - Scratch [Unknown]
  - Palpitations [Unknown]
  - Confusional state [Unknown]
  - Drug ineffective [Unknown]

NARRATIVE: CASE EVENT DATE: 20200801
